FAERS Safety Report 18216944 (Version 3)
Quarter: 2020Q4

REPORT INFORMATION
  Report Type: Spontaneous
  Country: PL (occurrence: PL)
  Receive Date: 20200901
  Receipt Date: 20201012
  Transmission Date: 20210113
  Serious: Yes (Hospitalization, Other)
  Sender: FDA-Public Use
  Company Number: PL-BRISTOL-MYERS SQUIBB COMPANY-BMS-2020-067922

PATIENT
  Age: 56 Year
  Sex: Female

DRUGS (10)
  1. NORFLOXACIN [Suspect]
     Active Substance: NORFLOXACIN
     Indication: URINARY TRACT INFECTION
  2. WARFARIN SODIUM. [Suspect]
     Active Substance: WARFARIN SODIUM
     Indication: ATRIAL FIBRILLATION
     Dosage: 200 MILLIGRAM, QD, DOSE ADJUSTED TO VALUE OF INTERNATIONAL NORMALISED RATIO
     Route: 065
  3. AMIODARON [AMIODARONE] [Concomitant]
     Active Substance: AMIODARONE
     Indication: ATRIAL FIBRILLATION
     Dosage: 200 MILLIGRAM, QD
     Route: 065
  4. PARACETAMOL [Interacting]
     Active Substance: ACETAMINOPHEN
     Indication: SPINAL PAIN
     Dosage: 1 GRAM, QID
     Route: 048
  5. PARACETAMOL [Interacting]
     Active Substance: ACETAMINOPHEN
     Indication: BACK PAIN
  6. NORFLOXACIN [Suspect]
     Active Substance: NORFLOXACIN
     Indication: CYSTITIS
     Dosage: 400 MILLIGRAM, BID
     Route: 048
  7. AGOMELATIN [Suspect]
     Active Substance: AGOMELATINE
     Indication: DEPRESSION
     Dosage: 50 MILLIGRAM, QD
     Route: 048
  8. CYCLONAMINE [Suspect]
     Active Substance: ETHAMSYLATE
     Indication: GENITAL HAEMORRHAGE
     Route: 065
  9. PARACETAMOL [Interacting]
     Active Substance: ACETAMINOPHEN
     Indication: ANALGESIC THERAPY
  10. AMIODARONE [Suspect]
     Active Substance: AMIODARONE
     Indication: ATRIAL FIBRILLATION
     Dosage: 200 MILLIGRAM, QD
     Route: 048

REACTIONS (11)
  - Drug interaction [Unknown]
  - Back pain [Unknown]
  - International normalised ratio increased [Unknown]
  - Genital haemorrhage [Unknown]
  - Escherichia urinary tract infection [Unknown]
  - Depression [Unknown]
  - Vaginal haemorrhage [Unknown]
  - Drug level increased [Unknown]
  - Haemorrhage [Unknown]
  - Fatigue [Unknown]
  - Spinal pain [Unknown]

NARRATIVE: CASE EVENT DATE: 2020
